FAERS Safety Report 8936186 (Version 2)
Quarter: 2013Q1

REPORT INFORMATION
  Report Type: Report from Study
  Country: JP (occurrence: JP)
  Receive Date: 20121130
  Receipt Date: 20130128
  Transmission Date: 20140127
  Serious: Yes (Other)
  Sender: FDA-Public Use
  Company Number: JP-VERTEX PHARMACEUTICAL INC.-AE-2012-008839

PATIENT
  Age: 60 Year
  Sex: Female

DRUGS (24)
  1. VX-950 (TELAPREVIR) [Suspect]
     Indication: CHRONIC HEPATITIS C
     Dosage: 2250 MG, QD
     Route: 048
     Dates: start: 20120217, end: 20120308
  2. VX-950 (TELAPREVIR) [Suspect]
     Dosage: 1500 MG, QD
     Route: 048
     Dates: start: 20120309, end: 20120417
  3. REBETOL [Suspect]
     Indication: CHRONIC HEPATITIS C
     Dosage: 400 MG, QD
     Route: 048
     Dates: start: 20120217, end: 20120302
  4. REBETOL [Suspect]
     Dosage: 200 MG, QD
     Route: 048
     Dates: start: 20120303, end: 20120315
  5. REBETOL [Suspect]
     Dosage: 400 MG, QD
     Route: 048
     Dates: start: 20120316, end: 20120328
  6. REBETOL [Suspect]
     Dosage: 200 MG, QD
     Route: 048
     Dates: start: 20120329, end: 20120417
  7. REBETOL [Suspect]
     Dosage: 200 MG, QD
     Route: 048
     Dates: start: 20120523, end: 20120529
  8. REBETOL [Suspect]
     Dosage: 600 MG, QD
     Route: 048
     Dates: start: 20120530, end: 20120724
  9. REBETOL [Suspect]
     Dosage: 400 MG, QD
     Route: 048
     Dates: start: 20120725, end: 20120731
  10. REBETOL [Suspect]
     Dosage: 200 MG, QD
     Route: 048
     Dates: start: 20120801
  11. PEGINTRON                          /01543001/ [Suspect]
     Indication: CHRONIC HEPATITIS C
     Dosage: 1.5 ?G/KG, QW
     Route: 058
     Dates: start: 20120217, end: 20120417
  12. PEGINTRON                          /01543001/ [Suspect]
     Dosage: 1.5 ?G/KG, QW
     Route: 058
     Dates: start: 20120425
  13. FERROMIA /00023516/ [Concomitant]
     Dosage: 50 MG, QD
     Route: 048
     Dates: end: 20120508
  14. FERROMIA /00023516/ [Concomitant]
     Dosage: 50 MG, QD
     Route: 048
     Dates: end: 20120725
  15. JUZENTAIHOTO [Concomitant]
     Dosage: 5 G, QD
     Route: 048
  16. BASEN [Concomitant]
     Dosage: 0.6 MG, QD
     Route: 048
  17. THYRADIN S [Concomitant]
     Dosage: 50 MG, QD
     Route: 048
  18. CO-DIOVAN [Concomitant]
     Dosage: 40 MG, QD
     Route: 048
  19. MERCAZOLE [Concomitant]
     Dosage: 5 MG, QD
     Route: 048
  20. LENDORMIN DAINIPPO [Concomitant]
     Dosage: 0.25 MG, QD
     Route: 048
     Dates: start: 20120216, end: 20120508
  21. ALLELOCK [Concomitant]
     Dosage: 10 MG, QD
     Route: 048
     Dates: start: 20120217, end: 20120220
  22. ALESION [Concomitant]
     Dosage: 10 MG, QD
     Route: 048
     Dates: start: 20120221, end: 20120522
  23. URSO                               /00465701/ [Concomitant]
     Dosage: 600 MG, QD
     Route: 048
  24. HALCION [Concomitant]
     Dosage: 0.25 MG, QD
     Route: 048
     Dates: start: 20120516

REACTIONS (2)
  - Neutrophil count decreased [Recovered/Resolved]
  - Haemoglobin decreased [Recovered/Resolved]
